FAERS Safety Report 7534035-7 (Version None)
Quarter: 2011Q2

REPORT INFORMATION
  Report Type: 
  Country: None (occurrence: None)
  Receive Date: 20110608
  Receipt Date: 20060810
  Transmission Date: 20111010
  Serious: Yes (Other)
  Sender: FDA-Public Use
  Company Number: PHMT2006CA01319

PATIENT

DRUGS (8)
  1. PLAVIX [Concomitant]
     Dosage: 75 MG, QD
  2. ALTACE [Concomitant]
     Dosage: 10 MG, QD
  3. DURAGESIC-100 [Concomitant]
     Dosage: 100 UG EVERY 3 DAYS
     Route: 062
  4. DILAUDID [Concomitant]
     Dosage: 2 MG, Q6H PRN
  5. MONOCOR [Concomitant]
     Dosage: 5 MG, QD
  6. CELEXA [Concomitant]
     Dosage: 20 MG, QD
  7. DIOVAN [Suspect]
     Route: 048
     Dates: start: 20030101
  8. ZOCOR ^MERCK FROSST^ [Concomitant]
     Dosage: 40 MG, QD

REACTIONS (3)
  - HYPERTENSION [None]
  - CORONARY ARTERY DISEASE [None]
  - PERIPHERAL VASCULAR DISORDER [None]
